FAERS Safety Report 10074533 (Version 1)
Quarter: 2014Q2

REPORT INFORMATION
  Report Type: Spontaneous
  Country: US (occurrence: US)
  Receive Date: 20140411
  Receipt Date: 20140411
  Transmission Date: 20141212
  Serious: No
  Sender: FDA-Public Use
  Company Number: US-SA-2013SA128058

PATIENT
  Age: 79 Year
  Sex: Female
  Weight: 68 kg

DRUGS (5)
  1. ALLEGRA D [Suspect]
     Indication: PARANASAL SINUS HYPERSECRETION
     Route: 048
     Dates: start: 20131204, end: 20131205
  2. MESALAMINE [Concomitant]
     Indication: COLITIS
  3. ALL OTHER THERAPEUTIC PRODUCTS [Concomitant]
     Indication: RETINAL DEGENERATION
  4. CALCIUM/VITAMIN D [Concomitant]
     Dosage: DOSE 500 MG - 1000 MG FOR BONE AND SKELETAL
  5. PRILOSEC [Concomitant]
     Indication: GASTROOESOPHAGEAL REFLUX DISEASE
     Dosage: DOSE:- 3-4 IN WEEKLY

REACTIONS (6)
  - Adverse event [Unknown]
  - Pain [Recovering/Resolving]
  - Abdominal distension [Recovered/Resolved]
  - Nausea [Recovering/Resolving]
  - Insomnia [Recovered/Resolved]
  - Drug ineffective [Unknown]
